FAERS Safety Report 15725570 (Version 1)
Quarter: 2018Q4

REPORT INFORMATION
  Report Type: Spontaneous
  Country: GB (occurrence: GB)
  Receive Date: 20181215
  Receipt Date: 20181215
  Transmission Date: 20190205
  Serious: Yes (Hospitalization)
  Sender: FDA-Public Use
  Company Number: GB-ACCORD-096230

PATIENT
  Age: 45 Year
  Sex: Female
  Weight: 100 kg

DRUGS (8)
  1. EPIRUBICIN [Suspect]
     Active Substance: EPIRUBICIN
     Indication: BREAST CANCER STAGE III
     Route: 042
  2. LANSOPRAZOLE. [Concomitant]
     Active Substance: LANSOPRAZOLE
  3. APREPITANT. [Concomitant]
     Active Substance: APREPITANT
  4. FLUOROURACIL. [Suspect]
     Active Substance: FLUOROURACIL
     Indication: BREAST CANCER STAGE III
     Route: 042
  5. GRANULOCYTE COLONY STIMULATING [Concomitant]
     Active Substance: GRANULOCYTE COLONY-STIMULATING FACTOR NOS
  6. CYCLOPHOSPHAMIDE. [Suspect]
     Active Substance: CYCLOPHOSPHAMIDE
     Indication: BREAST CANCER STAGE III
     Route: 042
  7. RANITIDINE. [Concomitant]
     Active Substance: RANITIDINE
  8. IBUPROFEN. [Concomitant]
     Active Substance: IBUPROFEN

REACTIONS (10)
  - Headache [Unknown]
  - Neutropenic sepsis [Unknown]
  - Dizziness [Unknown]
  - Cough [Unknown]
  - Pyrexia [Unknown]
  - Abdominal distension [Unknown]
  - Malaise [Unknown]
  - Dyspnoea [Unknown]
  - Hyperhidrosis [Unknown]
  - Asthenia [Unknown]

NARRATIVE: CASE EVENT DATE: 20180125
